FAERS Safety Report 13916318 (Version 2)
Quarter: 2017Q3

REPORT INFORMATION
  Report Type: Spontaneous
  Country: US (occurrence: US)
  Receive Date: 20170829
  Receipt Date: 20170905
  Transmission Date: 20171127
  Serious: Yes (Other)
  Sender: FDA-Public Use
  Company Number: US-PFIZER INC-2017362635

PATIENT
  Sex: Male

DRUGS (6)
  1. LYRICA [Suspect]
     Active Substance: PREGABALIN
     Dosage: 50 MG, 2X/DAY
     Dates: end: 20170829
  2. MELOXICAM. [Suspect]
     Active Substance: MELOXICAM
     Indication: BACK PAIN
     Dosage: 25 MG, 2X/DAY (ONCE A DAY, ONCE AT NIGHT)
  3. LYRICA [Suspect]
     Active Substance: PREGABALIN
     Indication: BURNING SENSATION
     Dosage: 50 MG, 3X/DAY
  4. MELOXICAM. [Suspect]
     Active Substance: MELOXICAM
     Indication: CERVICAL SPINAL STENOSIS
     Dosage: 15 MG, 1X/DAY AT NIGHT
  5. LYRICA [Suspect]
     Active Substance: PREGABALIN
     Indication: PARAESTHESIA
     Dosage: 250 MG, 1X/DAY
  6. LYRICA [Suspect]
     Active Substance: PREGABALIN
     Indication: NEURALGIA
     Dosage: 50 MG, 2X/DAY

REACTIONS (3)
  - Ulcer haemorrhage [Unknown]
  - Gastric haemorrhage [Unknown]
  - Haemoglobin decreased [Unknown]
